FAERS Safety Report 24305880 (Version 1)
Quarter: 2024Q3

REPORT INFORMATION
  Report Type: Spontaneous
  Country: ET (occurrence: ET)
  Receive Date: 20240911
  Receipt Date: 20240911
  Transmission Date: 20241017
  Serious: Yes (Other)
  Sender: RANBAXY
  Company Number: ET-SUN PHARMACEUTICAL INDUSTRIES LTD-2024R1-467002

PATIENT
  Age: 50 Year
  Sex: Male

DRUGS (2)
  1. CISPLATIN [Suspect]
     Active Substance: CISPLATIN
     Indication: Cholangiocarcinoma
     Dosage: 60 MILLIGRAM/SQ. METER
     Route: 065
  2. GEMCITABINE [Suspect]
     Active Substance: GEMCITABINE
     Indication: Cholangiocarcinoma
     Dosage: 1000 MILLIGRAM/SQ. METER
     Route: 065

REACTIONS (1)
  - Peripheral artery occlusion [Recovering/Resolving]
